FAERS Safety Report 13753847 (Version 1)
Quarter: 2017Q3

REPORT INFORMATION
  Report Type: Spontaneous
  Country: US (occurrence: US)
  Receive Date: 20170714
  Receipt Date: 20170714
  Transmission Date: 20171127
  Serious: Yes (Life-Threatening)
  Sender: FDA-Public Use
  Company Number: None

PATIENT
  Age: 50 Year
  Sex: Female
  Weight: 93.15 kg

DRUGS (11)
  1. ALEVE [Concomitant]
     Active Substance: NAPROXEN SODIUM
  2. SINGULAIR [Concomitant]
     Active Substance: MONTELUKAST SODIUM
  3. ATORVASTATIN [Concomitant]
     Active Substance: ATORVASTATIN
  4. LEVOTHYROXINE. [Concomitant]
     Active Substance: LEVOTHYROXINE
  5. VENTOLIN HFA [Concomitant]
     Active Substance: ALBUTEROL SULFATE
  6. VITAMIN D [Concomitant]
     Active Substance: CHOLECALCIFEROL
  7. MONTELUKAST SOD [Concomitant]
     Active Substance: MONTELUKAST SODIUM
  8. CHANTIX [Suspect]
     Active Substance: VARENICLINE TARTRATE
     Indication: SMOKING CESSATION THERAPY
     Dosage: ?          OTHER STRENGTH:MG;QUANTITY:30 TABLET(S);?
     Route: 048
     Dates: start: 20170708
  9. ZYRTEC [Concomitant]
     Active Substance: CETIRIZINE HYDROCHLORIDE
  10. OSCAL CALCIUM PLUS D3 [Concomitant]
  11. CENTRUM WOMEN MULTI VITAMIN [Concomitant]

REACTIONS (10)
  - Concussion [None]
  - Drug hypersensitivity [None]
  - Hypoacusis [None]
  - Tremor [None]
  - Visual impairment [None]
  - Loss of consciousness [None]
  - Fall [None]
  - Bone contusion [None]
  - Retching [None]
  - Nausea [None]

NARRATIVE: CASE EVENT DATE: 20170708
